FAERS Safety Report 20103076 (Version 5)
Quarter: 2022Q1

REPORT INFORMATION
  Report Type: Spontaneous
  Country: US (occurrence: US)
  Receive Date: 20211123
  Receipt Date: 20220323
  Transmission Date: 20220423
  Serious: Yes (Death)
  Sender: FDA-Public Use
  Company Number: US-KARYOPHARM-2021KPT001367

PATIENT

DRUGS (3)
  1. XPOVIO [Suspect]
     Active Substance: SELINEXOR
     Indication: Diffuse large B-cell lymphoma
     Dosage: 60 MG, 2X/WEEK
     Route: 048
     Dates: start: 20210930
  2. XPOVIO [Suspect]
     Active Substance: SELINEXOR
     Dosage: 40 MG, 2X/WEEK
     Route: 048
     Dates: start: 20211115
  3. XPOVIO [Suspect]
     Active Substance: SELINEXOR
     Dosage: 60 MG, WEEKLY
     Route: 048
     Dates: start: 2021, end: 20211216

REACTIONS (10)
  - Death [Fatal]
  - Back pain [Not Recovered/Not Resolved]
  - Red blood cell count decreased [Unknown]
  - Haematocrit decreased [Unknown]
  - Haemoglobin decreased [Unknown]
  - Constipation [Unknown]
  - Platelet count decreased [Not Recovered/Not Resolved]
  - Weight decreased [Not Recovered/Not Resolved]
  - Decreased appetite [Unknown]
  - Therapeutic product effect decreased [Unknown]

NARRATIVE: CASE EVENT DATE: 20210101
